FAERS Safety Report 10598509 (Version 3)
Quarter: 2014Q4

REPORT INFORMATION
  Report Type: Spontaneous
  Country: US (occurrence: US)
  Receive Date: 20141121
  Receipt Date: 20141222
  Transmission Date: 20150529
  Serious: Yes (Other)
  Sender: FDA-Public Use
  Company Number: CHPA2014US015349

PATIENT
  Age: 59 Year
  Sex: Female

DRUGS (1)
  1. KERI RENEWAL SKIN FIRMING LOTION [Suspect]
     Active Substance: COSMETICS
     Indication: SKIN TIGHTNESS
     Dosage: UNK, BID
     Route: 061
     Dates: start: 20140801

REACTIONS (6)
  - Pyrexia [Not Recovered/Not Resolved]
  - Malaise [Not Recovered/Not Resolved]
  - Drug ineffective [Unknown]
  - Cystitis [Not Recovered/Not Resolved]
  - Skin haemorrhage [Not Recovered/Not Resolved]
  - Sinusitis [Not Recovered/Not Resolved]

NARRATIVE: CASE EVENT DATE: 2014
